FAERS Safety Report 4625195-6 (Version None)
Quarter: 2005Q1

REPORT INFORMATION
  Report Type: 
  Country: None (occurrence: None)
  Receive Date: 20050325
  Receipt Date: 20050125
  Transmission Date: 20050727
  Serious: No
  Sender: FDA-Public Use
  Company Number: USA050189206

PATIENT
  Age: 78 Year
  Sex: Female
  Weight: 59 kg

DRUGS (3)
  1. FORTEO [Suspect]
     Indication: OSTEOPOROSIS
     Dosage: 20 UG
     Dates: start: 20050122
  2. ESTROGEN PATCHES [Concomitant]
  3. LIQUID CALCIUM [Concomitant]

REACTIONS (3)
  - HEADACHE [None]
  - JOINT SWELLING [None]
  - WEIGHT INCREASED [None]
